FAERS Safety Report 16346949 (Version 1)
Quarter: 2019Q2

REPORT INFORMATION
  Report Type: Spontaneous
  Country: DE (occurrence: DE)
  Receive Date: 20190523
  Receipt Date: 20190523
  Transmission Date: 20190711
  Serious: Yes (Other)
  Sender: FDA-Public Use
  Company Number: DE-AUROBINDO-AUR-APL-2019-010424

PATIENT

DRUGS (1)
  1. LEVOFLOXACIN FILMCOATED TABLET [Suspect]
     Active Substance: LEVOFLOXACIN
     Indication: URINARY TRACT INFECTION
     Dosage: 500 MILLIGRAM, UNK
     Route: 065

REACTIONS (19)
  - Rhabdomyolysis [Unknown]
  - Mucosal disorder [Not Recovered/Not Resolved]
  - Muscular weakness [Not Recovered/Not Resolved]
  - Palpitations [Recovered/Resolved]
  - Faeces hard [Recovered/Resolved]
  - Urinary incontinence [Recovered/Resolved]
  - Muscle twitching [Recovered/Resolved]
  - Tendon pain [Recovered/Resolved]
  - Blood creatine phosphokinase increased [Recovering/Resolving]
  - Myalgia [Recovered/Resolved]
  - Head discomfort [Unknown]
  - Arthralgia [Recovered/Resolved]
  - Hyperaesthesia [Not Recovered/Not Resolved]
  - Burning sensation [Unknown]
  - Eczema [Not Recovered/Not Resolved]
  - Dysaesthesia [Unknown]
  - Anxiety [Recovered/Resolved]
  - Somnolence [Not Recovered/Not Resolved]
  - Central pain syndrome [Unknown]

NARRATIVE: CASE EVENT DATE: 20181019
